FAERS Safety Report 19804294 (Version 1)
Quarter: 2021Q3

REPORT INFORMATION
  Report Type: Spontaneous
  Country: US (occurrence: US)
  Receive Date: 20210908
  Receipt Date: 20210908
  Transmission Date: 20211014
  Serious: No
  Sender: FDA-Public Use
  Company Number: US-FARMAPROD-202104-0662

PATIENT
  Sex: Female

DRUGS (7)
  1. FISH OIL [Concomitant]
     Active Substance: FISH OIL
     Dosage: 100?150 MG
  2. DIGESTIVE ENZYMES [Concomitant]
     Active Substance: UNSPECIFIED INGREDIENT
  3. PROBIOTIC 10B CELL [Concomitant]
  4. QVAR REDIHALER [Concomitant]
     Active Substance: BECLOMETHASONE DIPROPIONATE
  5. PROGESTERONE. [Concomitant]
     Active Substance: PROGESTERONE
  6. ALBUTEROL SULFATE. [Concomitant]
     Active Substance: ALBUTEROL SULFATE
  7. OXERVATE [Suspect]
     Active Substance: CENEGERMIN-BKBJ
     Indication: NEUROTROPHIC KERATOPATHY
     Route: 047
     Dates: start: 20210405

REACTIONS (4)
  - Lacrimation increased [Unknown]
  - Eye pain [Unknown]
  - Ocular discomfort [Unknown]
  - Eye swelling [Unknown]
